FAERS Safety Report 15240413 (Version 2)
Quarter: 2018Q4

REPORT INFORMATION
  Report Type: Spontaneous
  Country: KR (occurrence: KR)
  Receive Date: 20180804
  Receipt Date: 20181109
  Transmission Date: 20190204
  Serious: Yes (Hospitalization)
  Sender: FDA-Public Use
  Company Number: KR-009507513-1808KOR001431

PATIENT
  Sex: Female

DRUGS (41)
  1. KEYTRUDA [Suspect]
     Active Substance: PEMBROLIZUMAB
     Dosage: 2 TIMES/1DAY, 2 VAILS
     Dates: start: 20180611, end: 20180611
  2. ALIMTA [Concomitant]
     Active Substance: PEMETREXED DISODIUM
     Dosage: 2 TIMES/1DAY
     Dates: start: 20180205, end: 20180205
  3. NEOPLATIN [Concomitant]
     Active Substance: CISPLATIN
     Dosage: 1 TIME/1DAY
     Dates: start: 20180305, end: 20180305
  4. NEOPLATIN [Concomitant]
     Active Substance: CISPLATIN
     Dosage: 1 TIME/1DAY
     Dates: start: 20180611, end: 20180611
  5. NEOPLATIN [Concomitant]
     Active Substance: CISPLATIN
     Dosage: 1 TIME/1DAY
     Dates: start: 20181001, end: 20181001
  6. LUTHIONE [Concomitant]
     Dosage: 2 TIMES/1 DAY
     Dates: start: 20180510, end: 20180510
  7. LUTHIONE [Concomitant]
     Dosage: 2 TIMES/1 DAY
     Dates: start: 20180611, end: 20180611
  8. LUTHIONE [Concomitant]
     Dosage: 2 TIMES/1 DAY
     Dates: start: 20180730, end: 20180730
  9. KEYTRUDA [Suspect]
     Active Substance: PEMBROLIZUMAB
     Dosage: 2 TIMES/1DAY, 2 VAILS
     Dates: start: 20180305, end: 20180305
  10. KEYTRUDA [Suspect]
     Active Substance: PEMBROLIZUMAB
     Dosage: 2 TIMES/1DAY, 2 VAILS
     Dates: start: 20180510, end: 20180510
  11. KEYTRUDA [Suspect]
     Active Substance: PEMBROLIZUMAB
     Dosage: UNK
     Dates: start: 20181001, end: 20181001
  12. ALIMTA [Concomitant]
     Active Substance: PEMETREXED DISODIUM
     Dosage: 2 TIMES/1DAY
     Dates: start: 20180402, end: 20180402
  13. ALIMTA [Concomitant]
     Active Substance: PEMETREXED DISODIUM
     Dosage: 2 TIMES/1DAY
     Dates: start: 20180510, end: 20180510
  14. ALIMTA [Concomitant]
     Active Substance: PEMETREXED DISODIUM
     Dosage: 2 TIMES/1DAY
     Dates: start: 20181001, end: 20181001
  15. NEOPLATIN [Concomitant]
     Active Substance: CISPLATIN
     Dosage: 1 TIME/1DAY
     Dates: start: 20180402, end: 20180402
  16. STIMOL [Concomitant]
     Dosage: 16 TIMES/1 DAY
     Dates: start: 20180204, end: 20180211
  17. LUTHIONE [Concomitant]
     Dosage: 2 TIMES/1 DAY
     Dates: start: 20180305, end: 20180305
  18. LUTHIONE [Concomitant]
     Dosage: 2 TIMES/1 DAY
     Dates: start: 20180827, end: 20180827
  19. LUTHIONE [Concomitant]
     Dosage: 2 TIMES/1 DAY
     Dates: start: 20181023, end: 20181023
  20. KEYTRUDA [Suspect]
     Active Substance: PEMBROLIZUMAB
     Dosage: 2 TIMES/1DAY, 2 VAILS
     Dates: start: 20180205, end: 20180205
  21. NEOPLATIN [Concomitant]
     Active Substance: CISPLATIN
     Dosage: 1 TIME/1DAY
     Dates: start: 20180730, end: 20180730
  22. LUTHIONE [Concomitant]
     Dosage: 2 TIMES/1 DAY
     Dates: start: 20180205, end: 20180205
  23. KEYTRUDA [Suspect]
     Active Substance: PEMBROLIZUMAB
     Dosage: UNK
     Dates: start: 20181023
  24. NEOPLATIN [Concomitant]
     Active Substance: CISPLATIN
     Dosage: 1 TIME/1DAY
     Dates: start: 20180205, end: 20180205
  25. NEOPLATIN [Concomitant]
     Active Substance: CISPLATIN
     Dosage: 1 TIME/1DAY
     Dates: start: 20180510, end: 20180510
  26. STIMOL [Concomitant]
     Dosage: 17 TIMES/1 DAY
     Dates: start: 20180509, end: 20180514
  27. LUTHIONE [Concomitant]
     Dosage: 2 TIMES/1 DAY
     Dates: start: 20180402, end: 20180402
  28. LUTHIONE [Concomitant]
     Dosage: 2 TIMES/1 DAY
     Dates: start: 20181001, end: 20181001
  29. KEYTRUDA [Suspect]
     Active Substance: PEMBROLIZUMAB
     Indication: NON-SMALL CELL LUNG CANCER
     Dosage: UNK
     Dates: start: 20171129, end: 20171129
  30. KEYTRUDA [Suspect]
     Active Substance: PEMBROLIZUMAB
     Dosage: UNK
     Dates: start: 20180115
  31. KEYTRUDA [Suspect]
     Active Substance: PEMBROLIZUMAB
     Dosage: UNK
     Dates: start: 20180827, end: 20180827
  32. ALIMTA [Concomitant]
     Active Substance: PEMETREXED DISODIUM
     Dosage: 2 TIMES/1DAY
     Dates: start: 20180730, end: 20180730
  33. KEYTRUDA [Suspect]
     Active Substance: PEMBROLIZUMAB
     Dosage: UNK
     Dates: start: 20171221
  34. ALIMTA [Concomitant]
     Active Substance: PEMETREXED DISODIUM
     Dosage: 2 TIMES/1DAY
     Dates: start: 20180305, end: 20180305
  35. ALIMTA [Concomitant]
     Active Substance: PEMETREXED DISODIUM
     Dosage: 2 TIMES/1DAY
     Dates: start: 20181023, end: 20181023
  36. NEOPLATIN [Concomitant]
     Active Substance: CISPLATIN
     Dosage: 1 TIME/1DAY
     Dates: start: 20180827, end: 20180827
  37. KEYTRUDA [Suspect]
     Active Substance: PEMBROLIZUMAB
     Dosage: 2 TIMES/1DAY, 2 VAILS
     Dates: start: 20180402, end: 20180402
  38. KEYTRUDA [Suspect]
     Active Substance: PEMBROLIZUMAB
     Dosage: UNK
     Dates: start: 20180730, end: 20180730
  39. ALIMTA [Concomitant]
     Active Substance: PEMETREXED DISODIUM
     Dosage: 2 TIMES/1DAY
     Dates: start: 20180614, end: 20180614
  40. ALIMTA [Concomitant]
     Active Substance: PEMETREXED DISODIUM
     Dosage: 2 TIMES/1DAY
     Dates: start: 20180827, end: 20180827
  41. NEOPLATIN [Concomitant]
     Active Substance: CISPLATIN
     Dosage: 1 TIME/1DAY
     Dates: start: 20181023, end: 20181023

REACTIONS (3)
  - Adverse event [Unknown]
  - Hypertension [Unknown]
  - Vomiting [Unknown]

NARRATIVE: CASE EVENT DATE: 201802
